FAERS Safety Report 18213654 (Version 1)
Quarter: 2020Q3

REPORT INFORMATION
  Report Type: Spontaneous
  Country: GB (occurrence: GB)
  Receive Date: 20200831
  Receipt Date: 20200831
  Transmission Date: 20201103
  Serious: Yes (Other)
  Sender: FDA-Public Use
  Company Number: GB-009507513-2008GBR012008

PATIENT
  Sex: Female

DRUGS (4)
  1. SINEMET PLUS 25 MG/100 MG TABLETS [Suspect]
     Active Substance: CARBIDOPA\LEVODOPA
     Indication: PARKINSON^S DISEASE
     Dosage: 25MG/100MG TABLET, TAKES 6 TIMES DAILY (AND ONE AT NIGHT)
     Route: 048
  2. SINEMET PLUS 25/100 MG COMPRIMIDOS [Suspect]
     Active Substance: CARBIDOPA\LEVODOPA
     Dosage: 25MG/100MG TABLET, TAKES 6 TIMES DAILY (AND ONE AT NIGHT)
     Route: 048
     Dates: start: 202008
  3. SINEMET PLUS 25 MG/100 MG TABLETS [Suspect]
     Active Substance: CARBIDOPA\LEVODOPA
     Dosage: GAVE HER THREE SINEMETS (THE HALF) INSTEAD
     Route: 048
     Dates: start: 20200820
  4. SINEMET PLUS 25/100 MG COMPRIMIDOS [Suspect]
     Active Substance: CARBIDOPA\LEVODOPA
     Indication: PARKINSON^S DISEASE
     Dosage: 25MG/100MG TABLET, TAKES 6 TIMES DAILY (AND ONE AT NIGHT)
     Route: 048
     Dates: start: 201911

REACTIONS (5)
  - Gait inability [Not Recovered/Not Resolved]
  - Drug ineffective [Not Recovered/Not Resolved]
  - Malabsorption [Not Recovered/Not Resolved]
  - Wrong technique in product usage process [Unknown]
  - Drug ineffective [Not Recovered/Not Resolved]

NARRATIVE: CASE EVENT DATE: 201911
